FAERS Safety Report 4525006-3 (Version None)
Quarter: 2004Q4

REPORT INFORMATION
  Report Type: 
  Country: None (occurrence: None)
  Receive Date: 20041208
  Receipt Date: 20041129
  Transmission Date: 20050328
  Serious: Yes (Other)
  Sender: FDA-Public Use
  Company Number: 2004101243

PATIENT
  Age: 67 Year
  Sex: Female
  Weight: 86.1834 kg

DRUGS (3)
  1. LIPITOR [Suspect]
     Indication: BLOOD CHOLESTEROL
     Dosage: 20 MG (20 MG, 1 IN 1 D), ORAL
     Route: 048
     Dates: start: 19960101, end: 20041101
  2. DILTIAZEM HYDROCHLORIDE [Concomitant]
  3. ACETYLSALICYLIC ACID [Concomitant]

REACTIONS (6)
  - BACK PAIN [None]
  - BEDRIDDEN [None]
  - BLOOD TEST ABNORMAL [None]
  - DIABETES MELLITUS [None]
  - DIFFICULTY IN WALKING [None]
  - MUSCLE CRAMP [None]
